FAERS Safety Report 25327637 (Version 2)
Quarter: 2025Q2

REPORT INFORMATION
  Report Type: Spontaneous
  Country: JP (occurrence: JP)
  Receive Date: 20250517
  Receipt Date: 20250620
  Transmission Date: 20250717
  Serious: No
  Sender: AMGEN
  Company Number: JP-AMGEN-JPNSP2025061956

PATIENT
  Age: 58 Year
  Sex: Female
  Weight: 54 kg

DRUGS (3)
  1. TEPEZZA [Suspect]
     Active Substance: TEPROTUMUMAB-TRBW
     Indication: Endocrine ophthalmopathy
     Route: 040
     Dates: start: 20250305
  2. TEPEZZA [Suspect]
     Active Substance: TEPROTUMUMAB-TRBW
     Route: 040
     Dates: start: 2025
  3. CARBIMAZOLE [Concomitant]
     Active Substance: CARBIMAZOLE
     Indication: Graves^ disease
     Dosage: TAKING 5 MG AND 7.5 MG ALTERNATELY, QD
     Route: 065
     Dates: start: 20231108

REACTIONS (5)
  - Vaginal infection [Recovered/Resolved]
  - Urethritis [Recovered/Resolved]
  - Glucose tolerance impaired [Not Recovered/Not Resolved]
  - Glycosylated haemoglobin increased [Not Recovered/Not Resolved]
  - Weight decreased [Not Recovered/Not Resolved]

NARRATIVE: CASE EVENT DATE: 20250305
